FAERS Safety Report 4665937-7 (Version None)
Quarter: 2005Q2

REPORT INFORMATION
  Report Type: 
  Country: None (occurrence: None)
  Receive Date: 20050517
  Receipt Date: 20050517
  Transmission Date: 20051028
  Serious: Yes (Death)
  Sender: FDA-Public Use
  Company Number: None

PATIENT
  Age: 82 Year
  Sex: Male
  Weight: 69.4003 kg

DRUGS (10)
  1. LOVASTATIN [Suspect]
     Indication: HYPERLIPIDAEMIA
     Dosage: 40MG   BID ORAL
     Route: 048
     Dates: start: 20050420, end: 20050512
  2. VERAPAMIL [Suspect]
     Indication: HYPERTENSION
     Dosage: 240MG  BID ORAL
     Route: 048
     Dates: start: 20041118, end: 20050512
  3. LISINOPRIL [Concomitant]
  4. NSAIDS [Concomitant]
  5. CYCLOBENZAPRINE HCL [Concomitant]
  6. DIGITEK 250 [Concomitant]
  7. LEVOTHROID [Concomitant]
  8. AMILORIDE HCL AND HYDROCHLOROTHIAZIDE [Concomitant]
  9. ASPIRIN [Concomitant]
  10. GLYBURIDE [Concomitant]

REACTIONS (20)
  - ABDOMINAL PAIN [None]
  - AZOTAEMIA [None]
  - BACK PAIN [None]
  - BLOOD BICARBONATE DECREASED [None]
  - BLOOD POTASSIUM INCREASED [None]
  - ENCEPHALOPATHY [None]
  - HAEMODIALYSIS [None]
  - HAEMODYNAMIC INSTABILITY [None]
  - INTESTINAL INFARCTION [None]
  - INTESTINAL ISCHAEMIA [None]
  - ISCHAEMIC HEPATITIS [None]
  - METABOLIC ACIDOSIS [None]
  - MUSCLE STRAIN [None]
  - MYOSITIS [None]
  - RENAL FAILURE ACUTE [None]
  - RESTLESSNESS [None]
  - RHABDOMYOLYSIS [None]
  - SEPSIS [None]
  - TACHYPNOEA [None]
  - WHITE BLOOD CELL COUNT INCREASED [None]
